FAERS Safety Report 7385478-6 (Version None)
Quarter: 2011Q1

REPORT INFORMATION
  Report Type: 
  Country: None (occurrence: None)
  Receive Date: 20110330
  Receipt Date: 20101220
  Transmission Date: 20110831
  Serious: Yes (Other)
  Sender: FDA-Public Use
  Company Number: US-AMGEN-USASP2010010578

PATIENT
  Sex: Female

DRUGS (2)
  1. CORTICOSTEROIDS [Concomitant]
     Dosage: UNK
     Dates: start: 20100201
  2. NPLATE [Suspect]
     Indication: IDIOPATHIC THROMBOCYTOPENIC PURPURA
     Dosage: 0.96 A?G/KG, UNK
     Dates: start: 20100409, end: 20100602

REACTIONS (1)
  - DRUG INEFFECTIVE [None]
